FAERS Safety Report 4448901-2 (Version None)
Quarter: 2004Q3

REPORT INFORMATION
  Report Type: 
  Country: None (occurrence: None)
  Receive Date: 20040909
  Receipt Date: 20040826
  Transmission Date: 20050211
  Serious: Yes (Hospitalization)
  Sender: FDA-Public Use
  Company Number: HQWYE363017AUG04

PATIENT
  Age: 52 Year
  Sex: Male
  Weight: 81.95 kg

DRUGS (15)
  1. RAPAMUNE [Suspect]
     Indication: PROPHYLAXIS AGAINST TRANSPLANT REJECTION
     Dosage: 2 MG 1X PER 1 DAY, ORAL
     Route: 048
     Dates: start: 20040419, end: 20040816
  2. PREDNISONE [Suspect]
     Indication: IMMUNOSUPPRESSANT DRUG THERAPY
     Dosage: 7.5 ONCE DAILY, ORAL
     Route: 048
     Dates: start: 20020310
  3. LANSOPRAZOLE [Concomitant]
  4. MAGNESIUM OXIDE (MAGNESIUM OXIDE) [Concomitant]
  5. URSODIOL (URSODEOXYCHOLIC ACID) [Concomitant]
  6. GLIPIZIDE [Concomitant]
  7. SODIUM BICARBONATE IN PLASTIC CONTAINER [Concomitant]
  8. ALLOPURINOL [Concomitant]
  9. ASPIRIN [Concomitant]
  10. FISH (FISH OIL) [Concomitant]
  11. ZOLPIDEM TARTRATE [Concomitant]
  12. FUROSEMIDE [Concomitant]
  13. METOPROLOL TARTRATE [Concomitant]
  14. CLONIDINE [Concomitant]
  15. AMLODIPINE [Concomitant]

REACTIONS (17)
  - BLOOD ALBUMIN DECREASED [None]
  - BLOOD CHOLESTEROL INCREASED [None]
  - BLOOD CREATININE INCREASED [None]
  - BLOOD FIBRINOGEN INCREASED [None]
  - BLOOD TRIGLYCERIDES INCREASED [None]
  - BLOOD UREA INCREASED [None]
  - CHEST X-RAY ABNORMAL [None]
  - HAEMATOCRIT DECREASED [None]
  - HAEMOGLOBIN DECREASED [None]
  - HEPATITIS C POSITIVE [None]
  - LOW DENSITY LIPOPROTEIN INCREASED [None]
  - LUNG INFILTRATION [None]
  - POST PROCEDURAL COMPLICATION [None]
  - PYREXIA [None]
  - RED BLOOD CELL COUNT DECREASED [None]
  - SINUSITIS [None]
  - WHITE BLOOD CELL COUNT DECREASED [None]
